FAERS Safety Report 18687142 (Version 3)
Quarter: 2021Q1

REPORT INFORMATION
  Report Type: Report from Study
  Country: US (occurrence: US)
  Receive Date: 20201231
  Receipt Date: 20210204
  Transmission Date: 20210419
  Serious: Yes (Hospitalization)
  Sender: FDA-Public Use
  Company Number: NVSC2020US344448

PATIENT
  Age: 19 Year
  Sex: Male

DRUGS (48)
  1. PERIDEX [Concomitant]
     Active Substance: CHLORHEXIDINE GLUCONATE
     Indication: DENTAL DISORDER PROPHYLAXIS
     Dosage: 15 ML, BID
     Route: 048
     Dates: start: 20200210
  2. SENOKOT [Concomitant]
     Active Substance: SENNOSIDES
     Indication: CONSTIPATION PROPHYLAXIS
     Dosage: 2 DOSAGE FORM, QD
     Route: 048
     Dates: start: 20200210
  3. NIASPAN ER [Concomitant]
     Active Substance: NIACIN
     Indication: HYPERTRIGLYCERIDAEMIA
  4. SODIUM BICARBONATE. [Concomitant]
     Active Substance: SODIUM BICARBONATE
     Indication: PRODUCT USED FOR UNKNOWN INDICATION
     Dosage: 30 MILLIEQUIVALENT AT EACH HD MTX ADMISSION
     Route: 042
     Dates: start: 20200414
  5. VORAXAZE [Concomitant]
     Active Substance: GLUCARPIDASE
     Indication: BLOOD CREATININE INCREASED
  6. MYCELEX [Concomitant]
     Active Substance: CLOTRIMAZOLE
     Indication: ANTIFUNGAL PROPHYLAXIS
     Dosage: 10 MILLIGRAM, TID
     Route: 048
     Dates: start: 20200706
  7. TYLENOL [Concomitant]
     Active Substance: ACETAMINOPHEN
     Indication: HEADACHE
     Dosage: 15 MG/KG PRN
     Route: 048
     Dates: start: 20200210
  8. LEVAQUIN [Concomitant]
     Active Substance: LEVOFLOXACIN
     Indication: PROPHYLAXIS
  9. XYZAL [Concomitant]
     Active Substance: LEVOCETIRIZINE DIHYDROCHLORIDE
     Indication: SEASONAL ALLERGY
     Dosage: 1 TABLET PRN
     Route: 048
     Dates: start: 20200502
  10. LIDOCAINE. [Concomitant]
     Active Substance: LIDOCAINE
     Indication: GASTROOESOPHAGEAL REFLUX DISEASE
     Dosage: 10 MILLILITER, ONCE, 2% MUCOSAL SOLUTION
     Route: 048
     Dates: start: 20200707, end: 20200707
  11. METHOTREXATE. [Suspect]
     Active Substance: METHOTREXATE
     Indication: ACUTE LYMPHOCYTIC LEUKAEMIA
     Dosage: UNK
     Route: 037
  12. BACTRIM DS [Concomitant]
     Active Substance: SULFAMETHOXAZOLE\TRIMETHOPRIM
     Indication: ANTIFUNGAL PROPHYLAXIS
     Dosage: 160 MILLIGRAM, BID
     Route: 048
     Dates: start: 20200210
  13. NIASPAN ER [Concomitant]
     Active Substance: NIACIN
     Indication: HYPERTRIGLYCERIDAEMIA
     Dosage: 2000 MILLIGRAM, QD
     Route: 048
     Dates: start: 20200408, end: 20200414
  14. TRANSDERM SCOP [Concomitant]
     Active Substance: SCOPOLAMINE
     Indication: PROPHYLAXIS OF NAUSEA AND VOMITING
     Dosage: 1 PATCH Q3DAYS
     Route: 062
     Dates: start: 20200414
  15. VISTARIL [Concomitant]
     Active Substance: HYDROXYZINE PAMOATE
     Indication: NAUSEA
     Dosage: 25 MG, PRN
     Route: 042
     Dates: start: 20200513, end: 20200513
  16. VORAXAZE [Concomitant]
     Active Substance: GLUCARPIDASE
     Indication: DRUG CLEARANCE DECREASED
     Dosage: 50 UNITS, ONCE
     Route: 042
     Dates: start: 20200514, end: 20200514
  17. GLYCOLAX [Concomitant]
     Active Substance: POLYETHYLENE GLYCOL 3350
     Indication: CONSTIPATION
     Dosage: 17 GRAM, QD
     Route: 048
     Dates: start: 20200513
  18. ROXICODONE [Concomitant]
     Active Substance: OXYCODONE HYDROCHLORIDE
     Indication: PAIN
     Dosage: 5 MILLIGRAM, PRN
     Route: 048
     Dates: start: 20200721
  19. INC424A [Suspect]
     Active Substance: RUXOLITINIB
     Indication: ACUTE LYMPHOCYTIC LEUKAEMIA
     Dosage: 100 MG, BID (FOR 14 DAYS EACH 28 DAY CYCLE)
     Route: 048
     Dates: start: 20201211, end: 20201221
  20. METHOTREXATE. [Suspect]
     Active Substance: METHOTREXATE
     Dosage: 45 MILLIGRAM, PER STUDY (WEEKLY)
     Route: 048
     Dates: start: 20210108
  21. PEGASPARGASE [Suspect]
     Active Substance: PEGASPARGASE
     Indication: ACUTE LYMPHOCYTIC LEUKAEMIA
     Dosage: UNK
     Route: 042
  22. PEPCID [Concomitant]
     Active Substance: FAMOTIDINE
     Indication: DYSPHAGIA
  23. ATIVAN [Concomitant]
     Active Substance: LORAZEPAM
     Indication: ANXIETY
     Dosage: 1 MILLIGRAM, PRN
     Route: 048
     Dates: start: 20200210
  24. ATIVAN [Concomitant]
     Active Substance: LORAZEPAM
     Indication: DYSPHAGIA
  25. SIMETHICONE (DIMETHICONE) [Concomitant]
     Active Substance: DIMETHICONE
     Indication: FLATULENCE
     Dosage: 80 MILLIGRAM, PRN
     Route: 048
     Dates: start: 20200515, end: 20200525
  26. COLACE [Concomitant]
     Active Substance: DOCUSATE SODIUM
     Indication: CONSTIPATION
     Dosage: 100 MILLIGRAM, QD
     Route: 048
     Dates: start: 20200523, end: 20200525
  27. METHOTREXATE. [Suspect]
     Active Substance: METHOTREXATE
     Dosage: 45 MILLIGRAM, PER STUDY (WEEKLY)
     Route: 048
     Dates: start: 20201112, end: 20201218
  28. PEPCID [Concomitant]
     Active Substance: FAMOTIDINE
     Indication: GASTRITIS PROPHYLAXIS
     Dosage: 20 MG, BID
     Route: 048
     Dates: start: 20200210
  29. HEPARIN [Concomitant]
     Active Substance: HEPARIN SODIUM
     Indication: CATHETER MANAGEMENT
     Dosage: 30 INTERNATIONAL UNIT, EVERY PORT ACCESS
     Route: 042
     Dates: start: 20200210
  30. LEVAQUIN [Concomitant]
     Active Substance: LEVOFLOXACIN
     Indication: NEUTROPENIA
     Dosage: 500 MILLIGRAM, WHEN NEUTROPENIC
     Route: 048
     Dates: start: 20200316
  31. PRILOSEC [Concomitant]
     Active Substance: OMEPRAZOLE MAGNESIUM
     Indication: GASTROOESOPHAGEAL REFLUX DISEASE
     Dosage: 40 MG, QD
     Route: 048
     Dates: start: 20200706
  32. TUMS [Concomitant]
     Active Substance: CALCIUM CARBONATE
     Indication: GASTROOESOPHAGEAL REFLUX DISEASE
     Dosage: 470 MG, PRN
     Route: 048
     Dates: start: 20200706
  33. MERCAPTOPURINE. [Suspect]
     Active Substance: MERCAPTOPURINE
     Indication: ACUTE LYMPHOCYTIC LEUKAEMIA
     Dosage: 167.9  QD
     Route: 048
     Dates: start: 20201112, end: 20201221
  34. MELATONIN [Concomitant]
     Active Substance: MELATONIN
     Indication: INSOMNIA
     Dosage: 5 MILLIGRAM, QD
     Route: 048
     Dates: start: 20200210
  35. ZOFRON [Concomitant]
     Active Substance: ONDANSETRON
     Indication: PROPHYLAXIS OF NAUSEA AND VOMITING
     Dosage: 8 MG, PRN
     Route: 048
     Dates: start: 20200210
  36. TYLENOL [Concomitant]
     Active Substance: ACETAMINOPHEN
     Indication: PYREXIA
  37. ATIVAN [Concomitant]
     Active Substance: LORAZEPAM
     Indication: MUSCULOSKELETAL STIFFNESS
  38. MAALOX ADVANCED [Concomitant]
     Indication: GASTROOESOPHAGEAL REFLUX DISEASE
     Dosage: 15 ML, ONCE/SINGLE
     Route: 048
     Dates: start: 20200707, end: 20200707
  39. MERCAPTOPURINE. [Suspect]
     Active Substance: MERCAPTOPURINE
     Dosage: 167.9  QD
     Route: 048
     Dates: start: 20210108
  40. PREDNISONE. [Suspect]
     Active Substance: PREDNISONE
     Indication: ACUTE LYMPHOCYTIC LEUKAEMIA
     Dosage: UNK
     Route: 048
  41. EMLA [Concomitant]
     Active Substance: LIDOCAINE\PRILOCAINE
     Indication: PAIN PROPHYLAXIS
     Dosage: 1 APPLICATION, EVERY PORT ACCESS
     Route: 061
     Dates: start: 20200210
  42. ATIVAN [Concomitant]
     Active Substance: LORAZEPAM
     Indication: MUSCULOSKELETAL STIFFNESS
  43. BENADRYL [Concomitant]
     Active Substance: DIPHENHYDRAMINE HYDROCHLORIDE
     Indication: HYPERSENSITIVITY
     Dosage: 25 MG, PRN
     Route: 048
     Dates: start: 20200601
  44. BENADRYL [Concomitant]
     Active Substance: DIPHENHYDRAMINE HYDROCHLORIDE
     Indication: NAUSEA
     Dosage: 25 MG, PRN
     Route: 042
     Dates: start: 20200609, end: 20200611
  45. VINCRISTINE [Suspect]
     Active Substance: VINCRISTINE
     Indication: ACUTE LYMPHOCYTIC LEUKAEMIA
     Dosage: UNK
     Route: 042
  46. ATIVAN [Concomitant]
     Active Substance: LORAZEPAM
     Indication: INSOMNIA
  47. ATIVAN [Concomitant]
     Active Substance: LORAZEPAM
     Indication: NAUSEA
  48. MIRALAX [Concomitant]
     Active Substance: POLYETHYLENE GLYCOL 3350
     Indication: CONSTIPATION
     Dosage: 17 GRAM, PRN
     Route: 048
     Dates: start: 20200504

REACTIONS (6)
  - Abdominal pain [Recovered/Resolved]
  - International normalised ratio increased [Recovering/Resolving]
  - Blood alkaline phosphatase increased [Recovering/Resolving]
  - Blood bilirubin increased [Recovering/Resolving]
  - Alanine aminotransferase increased [Recovering/Resolving]
  - Activated partial thromboplastin time prolonged [Recovering/Resolving]

NARRATIVE: CASE EVENT DATE: 20201218
